FAERS Safety Report 8211273-1 (Version None)
Quarter: 2012Q1

REPORT INFORMATION
  Report Type: 
  Country: None (occurrence: None)
  Receive Date: 20120315
  Receipt Date: 20120312
  Transmission Date: 20120608
  Serious: No
  Sender: FDA-Public Use
  Company Number: US-PFIZER INC-2012064813

PATIENT

DRUGS (1)
  1. EFFEXOR [Suspect]
     Dosage: 75 MG, UNK

REACTIONS (2)
  - EMOTIONAL DISORDER [None]
  - ANGER [None]
